FAERS Safety Report 9647838 (Version 2)
Quarter: 2013Q4

REPORT INFORMATION
  Report Type: Spontaneous
  Country: US (occurrence: US)
  Receive Date: 20131028
  Receipt Date: 20131105
  Transmission Date: 20140711
  Serious: No
  Sender: FDA-Public Use
  Company Number: US-PFIZER INC-2013302347

PATIENT
  Age: 30 Year
  Sex: Male

DRUGS (1)
  1. ZOLOFT [Suspect]
     Dosage: UNK

REACTIONS (10)
  - Decreased interest [Unknown]
  - Asthenia [Unknown]
  - Fatigue [Unknown]
  - Apathy [Unknown]
  - Insomnia [Unknown]
  - Disturbance in attention [Unknown]
  - Nervousness [Unknown]
  - Appetite disorder [Unknown]
  - Tension [Unknown]
  - Restlessness [Unknown]
